FAERS Safety Report 16092084 (Version 1)
Quarter: 2019Q1

REPORT INFORMATION
  Report Type: Spontaneous
  Country: AU (occurrence: AU)
  Receive Date: 20190319
  Receipt Date: 20190319
  Transmission Date: 20190418
  Serious: Yes (Death)
  Sender: FDA-Public Use
  Company Number: AU-CELGENEUS-AUS-20190208658

PATIENT
  Sex: Male

DRUGS (2)
  1. THALIDOMIDE PHARMION [Suspect]
     Active Substance: THALIDOMIDE
     Indication: PRODUCT USE IN UNAPPROVED INDICATION
  2. THALIDOMIDE PHARMION [Suspect]
     Active Substance: THALIDOMIDE
     Indication: GRAFT VERSUS HOST DISEASE
     Route: 065

REACTIONS (1)
  - Graft versus host disease [Fatal]
